FAERS Safety Report 6368399-7 (Version None)
Quarter: 2009Q3

REPORT INFORMATION
  Report Type: 
  Country: None (occurrence: None)
  Receive Date: 20090922
  Receipt Date: 20090916
  Transmission Date: 20100115
  Serious: Yes (Other)
  Sender: FDA-Public Use
  Company Number: JP-B.I. PHARMACEUTICALS,INC./RIDGEFIELD-2009-BP-10318NB

PATIENT
  Sex: Male
  Weight: 54 kg

DRUGS (11)
  1. MICARDIS [Suspect]
     Dosage: 40 MG
     Route: 048
     Dates: start: 20090823, end: 20090901
  2. ARTIST [Suspect]
     Dosage: 2.5 MG
     Route: 065
     Dates: start: 20090823
  3. MELBIN [Suspect]
     Dosage: 500 MG
     Route: 065
     Dates: start: 20090901
  4. LIVALO [Concomitant]
     Dosage: 2 MG
     Route: 065
     Dates: start: 20090622
  5. PLAVIX [Concomitant]
     Dosage: 75 MG
     Route: 065
     Dates: start: 20090611
  6. ASPIRIN [Concomitant]
     Dosage: 100 MG
     Route: 065
     Dates: start: 20090611
  7. ALDACTONE [Concomitant]
     Dosage: 25 MG
     Route: 065
     Dates: start: 20090611
  8. DIART [Concomitant]
     Dosage: 60 MG
     Route: 065
     Dates: start: 20090611
  9. LAC-B [Concomitant]
     Dosage: 2 G
     Route: 065
     Dates: start: 20090611
  10. EPADEL S [Concomitant]
     Dosage: 900 MG
     Route: 065
     Dates: start: 20090611
  11. EUGLUCON [Concomitant]
     Dosage: 2.5 MG
     Route: 065
     Dates: start: 20090611

REACTIONS (1)
  - PHOTOPHOBIA [None]
